FAERS Safety Report 5928702-6 (Version None)
Quarter: 2008Q3

REPORT INFORMATION
  Report Type: 
  Country: None (occurrence: None)
  Receive Date: 20080923
  Receipt Date: 20080620
  Transmission Date: 20090109
  Serious: Yes (Disabling)
  Sender: FDA-Public Use
  Company Number: WAES 0806USA07828

PATIENT
  Sex: Female

DRUGS (5)
  1. VYTORIN [Suspect]
     Indication: BLOOD CHOLESTEROL INCREASED
     Dosage: 10-40 MG/DAILY/PO
     Route: 048
  2. VICODIN [Concomitant]
  3. XANAX [Concomitant]
  4. [THERAPY UNSPECIFIED] [Concomitant]
  5. ETODOLAC [Concomitant]

REACTIONS (1)
  - MUSCLE SPASMS [None]
